FAERS Safety Report 19803510 (Version 2)
Quarter: 2021Q3

REPORT INFORMATION
  Report Type: Spontaneous
  Country: SA (occurrence: SA)
  Receive Date: 20210908
  Receipt Date: 20210917
  Transmission Date: 20211014
  Serious: Yes (Life-Threatening, Hospitalization, Other)
  Sender: FDA-Public Use
  Company Number: SA-SANOFI-AVENTIS-2010SA045412

PATIENT
  Age: 36 Year
  Sex: Female

DRUGS (21)
  1. LOPERAMIDE [Concomitant]
     Active Substance: LOPERAMIDE
     Indication: ABDOMINAL WALL HAEMATOMA
     Dosage: UNK
     Route: 065
     Dates: start: 1998
  2. RANITIDINE. [Interacting]
     Active Substance: RANITIDINE
     Indication: GASTROOESOPHAGEAL REFLUX DISEASE
  3. LOPERAMIDE [Concomitant]
     Active Substance: LOPERAMIDE
     Indication: ABDOMINAL WALL INFECTION
  4. SULFAMETHOXAZOLE [Concomitant]
     Active Substance: SULFAMETHOXAZOLE
     Indication: ABDOMINAL WALL HAEMATOMA
     Dosage: UNK
     Route: 065
     Dates: start: 1998
  5. RANITIDINE. [Suspect]
     Active Substance: RANITIDINE
     Indication: DYSPEPSIA
     Dosage: 150 MG,BID BY MOUTH (PO)
     Route: 048
     Dates: start: 19981201
  6. METRONIDAZOLE. [Interacting]
     Active Substance: METRONIDAZOLE
     Indication: ABDOMINAL WALL HAEMATOMA
     Dosage: UNK
     Route: 065
     Dates: start: 1998
  7. ONDANSETRON [Concomitant]
     Active Substance: ONDANSETRON
     Indication: NAUSEA
     Dosage: UNK
     Route: 065
     Dates: start: 1998
  8. AMIODARONE HYDROCHLORIDE. [Interacting]
     Active Substance: AMIODARONE HYDROCHLORIDE
     Dosage: UNK
     Route: 065
     Dates: start: 199812
  9. CISAPRIDE [Interacting]
     Active Substance: CISAPRIDE
     Indication: DYSPEPSIA
     Dosage: 10 MG,TID
     Route: 065
     Dates: start: 19981201, end: 19981207
  10. ONDANSETRON [Concomitant]
     Active Substance: ONDANSETRON
     Indication: VOMITING
  11. NITROFURANTOIN. [Concomitant]
     Active Substance: NITROFURANTOIN
     Indication: ABDOMINAL WALL HAEMATOMA
     Dosage: UNK
     Route: 065
     Dates: start: 1998
  12. SULFAMETHOXAZOLE [Concomitant]
     Active Substance: SULFAMETHOXAZOLE
     Indication: ABDOMINAL WALL INFECTION
  13. CISAPRIDE [Interacting]
     Active Substance: CISAPRIDE
     Indication: GASTROOESOPHAGEAL REFLUX DISEASE
  14. METOCLOPRAMIDE. [Concomitant]
     Active Substance: METOCLOPRAMIDE
     Indication: NAUSEA
     Dosage: UNK
     Route: 065
     Dates: start: 1998
  15. METOCLOPRAMIDE. [Concomitant]
     Active Substance: METOCLOPRAMIDE
     Indication: VOMITING
  16. TETRACYCLINE [Concomitant]
     Active Substance: TETRACYCLINE
     Indication: ABDOMINAL WALL INFECTION
  17. METRONIDAZOLE. [Interacting]
     Active Substance: METRONIDAZOLE
     Indication: ABDOMINAL WALL INFECTION
  18. METOCLOPRAMIDE. [Concomitant]
     Active Substance: METOCLOPRAMIDE
     Indication: DECREASED APPETITE
  19. ONDANSETRON [Concomitant]
     Active Substance: ONDANSETRON
     Indication: DECREASED APPETITE
  20. NITROFURANTOIN. [Concomitant]
     Active Substance: NITROFURANTOIN
     Indication: ABDOMINAL WALL INFECTION
  21. TETRACYCLINE [Concomitant]
     Active Substance: TETRACYCLINE
     Indication: ABDOMINAL WALL HAEMATOMA
     Dosage: UNK
     Route: 065
     Dates: start: 1998

REACTIONS (7)
  - Torsade de pointes [Recovered/Resolved]
  - Ventricular tachycardia [Recovered/Resolved]
  - Pulse absent [Recovered/Resolved]
  - Drug interaction [Recovered/Resolved]
  - Electrocardiogram QT prolonged [Recovered/Resolved]
  - Circulatory collapse [Recovered/Resolved]
  - Loss of consciousness [Recovered/Resolved]

NARRATIVE: CASE EVENT DATE: 19981203
